FAERS Safety Report 16948897 (Version 4)
Quarter: 2020Q3

REPORT INFORMATION
  Report Type: Spontaneous
  Country: PT (occurrence: PT)
  Receive Date: 20191023
  Receipt Date: 20200923
  Transmission Date: 20201102
  Serious: Yes (Hospitalization, Other)
  Sender: FDA-Public Use
  Company Number: NVSC2019PT011815

PATIENT
  Age: 68 Year
  Sex: Female

DRUGS (9)
  1. ESOMEPRAZOLE. [Suspect]
     Active Substance: ESOMEPRAZOLE MAGNESIUM
     Dosage: UNK
     Route: 048
  2. ACETYLSALICYLIC ACID [Suspect]
     Active Substance: ASPIRIN
     Indication: PRODUCT USED FOR UNKNOWN INDICATION
     Dosage: 100 MG
     Route: 065
  3. FLUOXETINE [Concomitant]
     Active Substance: FLUOXETINE HYDROCHLORIDE
     Indication: PRODUCT USED FOR UNKNOWN INDICATION
     Dosage: 20 MG
     Route: 065
  4. SINVASTATINA [Concomitant]
     Active Substance: SIMVASTATIN
     Indication: PRODUCT USED FOR UNKNOWN INDICATION
     Dosage: 20 MG
     Route: 065
  5. FLUOXETINE [Concomitant]
     Active Substance: FLUOXETINE HYDROCHLORIDE
     Dosage: UNK
     Route: 048
  6. IRBESARTAN. [Concomitant]
     Active Substance: IRBESARTAN
     Indication: PRODUCT USED FOR UNKNOWN INDICATION
     Dosage: 150 MG
     Route: 065
  7. SINVASTATINA [Concomitant]
     Active Substance: SIMVASTATIN
     Dosage: UNK
     Route: 048
  8. ESOMEPRAZOLE. [Suspect]
     Active Substance: ESOMEPRAZOLE MAGNESIUM
     Indication: PRODUCT USED FOR UNKNOWN INDICATION
     Dosage: 20 MG
     Route: 065
  9. ACETAMINOPHEN (PARACETAMOL) [Suspect]
     Active Substance: ACETAMINOPHEN
     Indication: MIGRAINE
     Dosage: UNK
     Route: 065

REACTIONS (21)
  - Pyrexia [Unknown]
  - Normocytic anaemia [Recovering/Resolving]
  - Decreased appetite [Unknown]
  - Hyperhidrosis [Unknown]
  - Weight decreased [Unknown]
  - Phonophobia [Unknown]
  - Product use in unapproved indication [Unknown]
  - Drug ineffective [Unknown]
  - Diarrhoea [Unknown]
  - Migraine [Unknown]
  - Photophobia [Unknown]
  - Chronic gastritis [Recovered/Resolved]
  - Infection susceptibility increased [Recovered/Resolved]
  - Hypochromic anaemia [Recovering/Resolving]
  - Therapeutic response decreased [Unknown]
  - Brucellosis [Recovered/Resolved]
  - Abdominal distension [Unknown]
  - Dyspepsia [Unknown]
  - Abdominal pain upper [Unknown]
  - Enteritis [Unknown]
  - Leukopenia [Recovered/Resolved]
